FAERS Safety Report 5417056-X (Version None)
Quarter: 2007Q3

REPORT INFORMATION
  Report Type: 
  Country: None (occurrence: None)
  Receive Date: 20070816
  Receipt Date: 20061101
  Transmission Date: 20080115
  Serious: No
  Sender: FDA-Public Use
  Company Number: US-BRISTOL-MYERS SQUIBB COMPANY-13580006

PATIENT

DRUGS (1)
  1. ZERIT [Suspect]

REACTIONS (1)
  - NEUROPATHY [None]
